FAERS Safety Report 5499382-1 (Version None)
Quarter: 2007Q4

REPORT INFORMATION
  Report Type: 
  Country: None (occurrence: None)
  Receive Date: 20071026
  Receipt Date: 20071023
  Transmission Date: 20080405
  Serious: Yes (Other)
  Sender: FDA-Public Use
  Company Number: A0689843A

PATIENT
  Sex: Male

DRUGS (3)
  1. COREG CR [Suspect]
     Indication: HYPERTENSION
  2. COREG [Suspect]
     Indication: HYPERTENSION
  3. STATINS [Concomitant]

REACTIONS (1)
  - HEPATIC ENZYME INCREASED [None]
